FAERS Safety Report 9991260 (Version 1)
Quarter: 2014Q1

REPORT INFORMATION
  Report Type: Report from Study
  Country: US (occurrence: US)
  Receive Date: 20140310
  Receipt Date: 20140310
  Transmission Date: 20141002
  Serious: No
  Sender: FDA-Public Use
  Company Number: US-ABBVIE-13P-163-1132455-00

PATIENT
  Age: 18 Year
  Sex: Male
  Weight: 88.53 kg

DRUGS (4)
  1. HUMIRA [Suspect]
     Indication: ARTHRITIS
     Dates: start: 201301
  2. LANSOPRAZOLE [Concomitant]
     Indication: GASTROOESOPHAGEAL REFLUX DISEASE
  3. MINOCYCLINE [Concomitant]
     Indication: ACNE
  4. UNNAMED INHALER [Concomitant]
     Indication: ASTHMA

REACTIONS (1)
  - Injection site swelling [Not Recovered/Not Resolved]
